FAERS Safety Report 14454390 (Version 1)
Quarter: 2018Q1

REPORT INFORMATION
  Report Type: Spontaneous
  Country: US (occurrence: US)
  Receive Date: 20180128
  Receipt Date: 20180128
  Transmission Date: 20180509
  Serious: Yes (Death, Life-Threatening, Hospitalization, Disabling)
  Sender: FDA-Public Use
  Company Number: None

PATIENT
  Age: 70 Year
  Sex: Female
  Weight: 103.5 kg

DRUGS (3)
  1. VICTOZA [Suspect]
     Active Substance: LIRAGLUTIDE
     Indication: DIABETES MELLITUS
     Route: 058
  2. HIGH BLOOD PRESSURE MEDS [Concomitant]
  3. METFORMIN [Concomitant]
     Active Substance: METFORMIN HYDROCHLORIDE

REACTIONS (6)
  - Therapy change [None]
  - Diabetes mellitus inadequate control [None]
  - Pancreatitis [None]
  - Liver disorder [None]
  - Haematemesis [None]
  - Pancreatic carcinoma [None]

NARRATIVE: CASE EVENT DATE: 20170310
